FAERS Safety Report 18261869 (Version 3)
Quarter: 2022Q4

REPORT INFORMATION
  Report Type: Spontaneous
  Country: US (occurrence: US)
  Receive Date: 20200914
  Receipt Date: 20221223
  Transmission Date: 20230112
  Serious: No
  Sender: FDA-Public Use
  Company Number: US-BIOGEN-2020BI00922961

PATIENT
  Age: 46 Year
  Sex: Female

DRUGS (11)
  1. TECFIDERA [Suspect]
     Active Substance: DIMETHYL FUMARATE
     Indication: Multiple sclerosis
     Route: 050
     Dates: start: 20191216
  2. AMOXICILLIN [Concomitant]
     Active Substance: AMOXICILLIN
     Route: 050
  3. ATENOLOL [Concomitant]
     Active Substance: ATENOLOL
     Route: 050
  4. BACLOFEN [Concomitant]
     Active Substance: BACLOFEN
     Route: 050
  5. GABAPENTIN [Concomitant]
     Active Substance: GABAPENTIN
     Route: 050
  6. MIRTAZAPINE [Concomitant]
     Active Substance: MIRTAZAPINE
     Route: 050
  7. HYDROCOD/HOM [Concomitant]
     Route: 050
  8. POTASSIUM [Concomitant]
     Active Substance: POTASSIUM
     Route: 050
  9. PREDNISONE [Concomitant]
     Active Substance: PREDNISONE
     Route: 050
  10. PREMARIN [Concomitant]
     Active Substance: ESTROGENS, CONJUGATED
     Route: 050
  11. TOPIRAMATE [Concomitant]
     Active Substance: TOPIRAMATE
     Route: 050

REACTIONS (2)
  - Dental caries [Not Recovered/Not Resolved]
  - Flushing [Unknown]

NARRATIVE: CASE EVENT DATE: 20200909
